FAERS Safety Report 9358844 (Version 1)
Quarter: 2013Q2

REPORT INFORMATION
  Report Type: Spontaneous
  Country: GB (occurrence: GB)
  Receive Date: 20130620
  Receipt Date: 20130620
  Transmission Date: 20140414
  Serious: Yes (Other)
  Sender: FDA-Public Use
  Company Number: GB-TEVA-413268ISR

PATIENT
  Age: 68 Year
  Sex: Male
  Weight: 75 kg

DRUGS (5)
  1. TAMSULOSIN [Suspect]
     Indication: PROSTATOMEGALY
     Dosage: NO RECORD
     Route: 048
     Dates: start: 20121015, end: 20121102
  2. PRIMIDONE [Concomitant]
  3. PHENOBARBITAL [Concomitant]
  4. FEXOFENADINE [Concomitant]
  5. FEBUXOSTAT [Concomitant]

REACTIONS (3)
  - Blister [Not Recovered/Not Resolved]
  - Erythema multiforme [Unknown]
  - Stevens-Johnson syndrome [Unknown]
